FAERS Safety Report 21109958 (Version 1)
Quarter: 2022Q3

REPORT INFORMATION
  Report Type: Other
  Country: JP (occurrence: JP)
  Receive Date: 20220721
  Receipt Date: 20220721
  Transmission Date: 20221027
  Serious: Yes (Hospitalization)
  Sender: FDA-Public Use
  Company Number: JP-ROCHE-3141027

PATIENT
  Age: 49 Year
  Sex: Male
  Weight: 66 kg

DRUGS (16)
  1. VEMURAFENIB [Suspect]
     Active Substance: VEMURAFENIB
     Indication: Malignant melanoma
     Dosage: 960 MILLIGRAM, QD
     Route: 048
  2. VEMURAFENIB [Suspect]
     Active Substance: VEMURAFENIB
     Dosage: 1920 MILLIGRAM, QD
     Route: 048
     Dates: start: 20150501, end: 20150929
  3. VEMURAFENIB [Suspect]
     Active Substance: VEMURAFENIB
     Dosage: 1920 MILLIGRAM, QD
     Route: 048
     Dates: start: 20170105, end: 20170205
  4. OPDIVO [Suspect]
     Active Substance: NIVOLUMAB
     Indication: Malignant melanoma
     Dosage: 120 MILLIGRAM, ONCE/3WEEKS
     Route: 041
     Dates: start: 20151006, end: 20160524
  5. OPDIVO [Suspect]
     Active Substance: NIVOLUMAB
     Dosage: 180 MILLIGRAM, ONCE/2WEEKS
     Route: 041
     Dates: start: 20161122, end: 20161221
  6. MEKINIST [Suspect]
     Active Substance: TRAMETINIB DIMETHYL SULFOXIDE
     Indication: Malignant melanoma
     Dosage: 2 MILLIGRAM, QD
     Route: 048
     Dates: start: 20160607, end: 20161115
  7. TAFINLAR [Suspect]
     Active Substance: DABRAFENIB MESYLATE
     Indication: Malignant melanoma
     Dosage: 300 MILLIGRAM, BID
     Route: 048
     Dates: start: 20160607, end: 20161115
  8. LOXOPROFEN SODIUM [Concomitant]
     Active Substance: LOXOPROFEN SODIUM
     Dosage: AMOUNT OF SINGLE-DOSE: 180 (UNIT UNCERTAINTY) THE FRACTIONATION DOSE FREQUENCY IS UNCERTAIN.
     Route: 048
     Dates: start: 20150421, end: 20150519
  9. REBAMIPIDE [Concomitant]
     Active Substance: REBAMIPIDE
     Indication: Gastritis prophylaxis
     Dosage: UNK
     Route: 048
     Dates: start: 20150421, end: 20150519
  10. PRIMPERAN [Concomitant]
     Active Substance: METOCLOPRAMIDE HYDROCHLORIDE
     Dosage: AMOUNT OF SINGLE-DOSE: 5 (UNIT UNCERTAINTY) SINGLE USE
     Route: 048
     Dates: start: 20150421, end: 20150519
  11. NITRAZEPAM [Concomitant]
     Active Substance: NITRAZEPAM
     Dosage: SINGLE USE
     Route: 048
     Dates: start: 20150421, end: 20150519
  12. CEFZONE [Concomitant]
     Dosage: AMOUNT OF SINGLE-DOSE: 300 (UNIT UNCERTAINTY) THE FRACTIONATION DOSE FREQUENCY IS UNCERTAIN.
     Route: 048
     Dates: start: 20150421, end: 20150429
  13. VOLTAREN [Concomitant]
     Active Substance: DICLOFENAC SODIUM
     Dosage: 50 MILLIGRAM, PRN  (SINGLE USE)
     Route: 054
     Dates: start: 20150421, end: 20150519
  14. LYRICA [Concomitant]
     Active Substance: PREGABALIN
     Dosage: AMOUNT OF SINGLE-DOSE: 150 (UNIT UNCERTAINTY) THE FRACTIONATION DOSE FREQUENCY IS UNCERTAIN.
     Route: 048
     Dates: start: 20150507, end: 20150602
  15. LEVOFLOXACIN [Concomitant]
     Active Substance: LEVOFLOXACIN
     Dosage: AMOUNT OF SINGLE-DOSE: 500 (UNIT UNCERTAINTY) THE FRACTIONATION DOSE FREQUENCY IS UNCERTAIN.
     Route: 048
     Dates: start: 20150501, end: 20150511
  16. CELECOXIB [Concomitant]
     Active Substance: CELECOXIB
     Indication: Prophylaxis
     Dosage: AMOUNT OF SINGLE-DOSE: 200 (UNIT UNCERTAINTY) THE FRACTIONATION DOSE FREQUENCY IS UNCERTAIN.
     Route: 048
     Dates: start: 20150623, end: 20150929

REACTIONS (6)
  - Haemophagocytic lymphohistiocytosis [Unknown]
  - Photosensitivity reaction [Recovering/Resolving]
  - Hyperkeratosis [Recovering/Resolving]
  - Papilloma [Recovering/Resolving]
  - Alopecia [Recovered/Resolved]
  - Arthralgia [Recovering/Resolving]

NARRATIVE: CASE EVENT DATE: 20150505
